FAERS Safety Report 10750097 (Version 1)
Quarter: 2015Q1

REPORT INFORMATION
  Report Type: Spontaneous
  Country: FR (occurrence: FR)
  Receive Date: 20150129
  Receipt Date: 20150129
  Transmission Date: 20150721
  Serious: Yes (Hospitalization, Other)
  Sender: FDA-Public Use
  Company Number: FR-BRISTOL-MYERS SQUIBB COMPANY-BMS-2015-002727

PATIENT
  Age: 72 Year
  Sex: Male
  Weight: 106 kg

DRUGS (11)
  1. COUMADINE [Suspect]
     Active Substance: WARFARIN SODIUM
     Indication: HEART VALVE OPERATION
     Dosage: 2 MG, UNK
     Route: 048
     Dates: end: 201410
  2. ESOMEPRAZOLE [Concomitant]
     Active Substance: ESOMEPRAZOLE
  3. HUMALOG [Concomitant]
     Active Substance: INSULIN LISPRO
  4. LANTUS [Concomitant]
     Active Substance: INSULIN GLARGINE
  5. TAHOR [Concomitant]
     Active Substance: ATORVASTATIN CALCIUM
  6. LASILIX                            /00032601/ [Concomitant]
     Active Substance: FUROSEMIDE
  7. LEVOTHYROX [Concomitant]
     Active Substance: LEVOTHYROXINE
  8. ALDACTONE [Concomitant]
     Active Substance: SPIRONOLACTONE
  9. TRIATEC                            /00116401/ [Concomitant]
     Active Substance: HYDROCHLOROTHIAZIDE
  10. ZOPICLONE [Concomitant]
     Active Substance: ZOPICLONE
  11. CARDENSIEL [Concomitant]
     Active Substance: BISOPROLOL FUMARATE

REACTIONS (5)
  - Small intestinal haemorrhage [Recovered/Resolved]
  - Pleurisy [Unknown]
  - Anaemia [Recovering/Resolving]
  - Melaena [Recovered/Resolved]
  - Angiodysplasia [Unknown]

NARRATIVE: CASE EVENT DATE: 201408
